FAERS Safety Report 22003621 (Version 1)
Quarter: 2023Q1

REPORT INFORMATION
  Report Type: Spontaneous
  Country: US (occurrence: US)
  Receive Date: 20230217
  Receipt Date: 20230217
  Transmission Date: 20230417
  Serious: No
  Sender: FDA-Public Use
  Company Number: US-JNJFOC-20230222099

PATIENT
  Age: 56 Year
  Sex: Male
  Weight: 99.880 kg

DRUGS (1)
  1. TREMFYA [Suspect]
     Active Substance: GUSELKUMAB
     Indication: Psoriasis
     Route: 058
     Dates: start: 202104

REACTIONS (2)
  - COVID-19 [Unknown]
  - Pigmentation disorder [Not Recovered/Not Resolved]

NARRATIVE: CASE EVENT DATE: 20220101
